FAERS Safety Report 23905507 (Version 1)
Quarter: 2024Q2

REPORT INFORMATION
  Report Type: Spontaneous
  Country: US (occurrence: US)
  Receive Date: 20240527
  Receipt Date: 20240527
  Transmission Date: 20240716
  Serious: No
  Sender: FDA-Public Use
  Company Number: US-JNJFOC-20240489443

PATIENT
  Age: 45 Year
  Sex: Male

DRUGS (1)
  1. MENS ROGAINE EXTRA STRENGTH [Suspect]
     Active Substance: MINOXIDIL
     Indication: Product used for unknown indication
     Dosage: HALF A QUARTER, JUST A LITTLE BIT JUST FOLLOW THE DIRECTIONS INDICATED
     Route: 061
     Dates: start: 202402

REACTIONS (3)
  - Underdose [Unknown]
  - Inappropriate schedule of product administration [Unknown]
  - Product container issue [Unknown]

NARRATIVE: CASE EVENT DATE: 20240201
